FAERS Safety Report 8796524 (Version 2)
Quarter: 2012Q4

REPORT INFORMATION
  Report Type: 
  Country: CZ (occurrence: CZ)
  Receive Date: 20120920
  Receipt Date: 20121015
  Transmission Date: 20130627
  Serious: Yes (Hospitalization, Other)
  Sender: FDA-Public Use
  Company Number: CZ-AMGEN-CZESP2012057898

PATIENT
  Age: 62 Year
  Sex: Male
  Weight: 78 kg

DRUGS (4)
  1. NEUPOGEN [Suspect]
     Indication: FEBRILE NEUTROPENIA
     Dosage: UNK
  2. BLEOMYCIN [Concomitant]
  3. ETOPOSIDE [Concomitant]
  4. CISPLATIN [Concomitant]
     Dosage: UNK

REACTIONS (19)
  - Therapeutic response decreased [Recovered/Resolved]
  - Staphylococcal infection [Recovering/Resolving]
  - Visceral leishmaniasis [Recovered/Resolved]
  - Device related infection [Unknown]
  - Vessel puncture site thrombosis [Unknown]
  - Clostridium difficile colitis [Unknown]
  - Ileus [Recovering/Resolving]
  - Pyrexia [Unknown]
  - Pancytopenia [Unknown]
  - Fatigue [Recovering/Resolving]
  - Hyperhidrosis [Recovering/Resolving]
  - Febrile neutropenia [Recovered/Resolved]
  - Renal failure [Recovering/Resolving]
  - Bone marrow failure [Unknown]
  - Splenomegaly [Unknown]
  - Confusional state [Recovering/Resolving]
  - Hepatomegaly [Unknown]
  - Soft tissue haemorrhage [Unknown]
  - Asthenia [Recovering/Resolving]
